FAERS Safety Report 6454454-X (Version None)
Quarter: 2009Q4

REPORT INFORMATION
  Report Type: 
  Country: None (occurrence: None)
  Receive Date: 20091124
  Receipt Date: 20091120
  Transmission Date: 20100525
  Serious: Yes (Death)
  Sender: FDA-Public Use
  Company Number: PHEH2009US15619

PATIENT
  Sex: Male

DRUGS (2)
  1. GLEEVEC [Suspect]
     Indication: MALIGNANT SOFT TISSUE NEOPLASM
     Dosage: 400 MG, QD
     Route: 048
  2. HYDROCODONE [Concomitant]

REACTIONS (1)
  - DEATH [None]
